FAERS Safety Report 8785265 (Version 5)
Quarter: 2012Q4

REPORT INFORMATION
  Report Type: 
  Country: US (occurrence: US)
  Receive Date: 20120914
  Receipt Date: 20121009
  Transmission Date: 20130627
  Serious: Yes (Death, Hospitalization)
  Sender: FDA-Public Use
  Company Number: US-JNJFOC-20120905012

PATIENT
  Sex: Female
  Weight: 76.5 kg

DRUGS (8)
  1. XARELTO [Suspect]
     Indication: CEREBROVASCULAR ACCIDENT PROPHYLAXIS
     Route: 048
     Dates: start: 201206
  2. XARELTO [Suspect]
     Indication: ATRIAL FIBRILLATION
     Route: 048
     Dates: start: 201206
  3. CALTRATE [Concomitant]
     Route: 048
  4. CENTRUM SILVER [Concomitant]
     Route: 048
  5. DIOVAN HCT [Concomitant]
     Route: 048
  6. AMARYL [Concomitant]
     Route: 048
  7. NISOLDIPINE [Concomitant]
     Route: 048
  8. NORTRIPTYLINE [Concomitant]
     Route: 048

REACTIONS (3)
  - Lower gastrointestinal haemorrhage [Recovering/Resolving]
  - Multi-organ failure [Fatal]
  - Pain in extremity [Recovering/Resolving]
